FAERS Safety Report 25231090 (Version 1)
Quarter: 2025Q2

REPORT INFORMATION
  Report Type: Spontaneous
  Country: US (occurrence: US)
  Receive Date: 20250423
  Receipt Date: 20250423
  Transmission Date: 20250716
  Serious: No
  Sender: SANOFI AVENTIS
  Company Number: US-SA-2025SA116616

PATIENT
  Age: 42 Year
  Sex: Male

DRUGS (9)
  1. DUPIXENT [Suspect]
     Active Substance: DUPILUMAB
     Indication: Eosinophilic oesophagitis
     Route: 058
     Dates: start: 20220729
  2. DUPIXENT [Suspect]
     Active Substance: DUPILUMAB
     Indication: Rhinitis allergic
  3. FAMOTIDINE [Concomitant]
     Active Substance: FAMOTIDINE
  4. VITAMINS [Concomitant]
     Active Substance: VITAMINS
  5. ZINC [Concomitant]
     Active Substance: ZINC
  6. VITAMIN D [Concomitant]
     Active Substance: VITAMIN D NOS
  7. QUERCETIN [Concomitant]
     Active Substance: QUERCETIN
  8. ADVIL [Concomitant]
     Active Substance: IBUPROFEN
  9. TYLENOL [Concomitant]
     Active Substance: ACETAMINOPHEN

REACTIONS (2)
  - Injection site pain [Unknown]
  - Product use in unapproved indication [Unknown]

NARRATIVE: CASE EVENT DATE: 20220729
